FAERS Safety Report 9832242 (Version 1)
Quarter: 2014Q1

REPORT INFORMATION
  Report Type: Spontaneous
  Country: IT (occurrence: IT)
  Receive Date: 20140121
  Receipt Date: 20140121
  Transmission Date: 20141002
  Serious: Yes (Hospitalization)
  Sender: FDA-Public Use
  Company Number: CHNY2014IT000490

PATIENT
  Sex: Male

DRUGS (10)
  1. DICLOFENAC [Suspect]
     Indication: INFLAMMATION
     Dosage: 75 MG, QD
     Route: 048
     Dates: start: 20131122, end: 20131211
  2. MUSCORIL [Suspect]
     Indication: INFLAMMATION
     Dosage: 4 MG, QD
     Route: 030
     Dates: start: 20131122, end: 20131211
  3. TORADOL [Suspect]
     Indication: PAIN
     Dosage: 30 MG, QD
     Route: 030
     Dates: start: 20131210, end: 20131211
  4. BENTELAN [Suspect]
     Indication: INFLAMMATION
     Dosage: 4 MG, QD
     Route: 030
     Dates: start: 20131122, end: 20131211
  5. PLAVIX [Suspect]
     Indication: THROMBOSIS PROPHYLAXIS
     Dosage: 75 MG, QD
     Route: 048
     Dates: start: 20110101, end: 20131214
  6. AULIN [Suspect]
     Indication: INFLAMMATION
     Dosage: 400 MG, QD
     Route: 048
     Dates: start: 20131201, end: 20131208
  7. UNIPRIL [Concomitant]
  8. CRESTOR [Concomitant]
  9. COMBISARTAN [Concomitant]
  10. CARVEDILOL [Concomitant]

REACTIONS (5)
  - Gastritis erosive [Recovered/Resolved]
  - Erosive duodenitis [Recovered/Resolved]
  - Melaena [Recovered/Resolved]
  - Anaemia [Recovered/Resolved]
  - Rectal haemorrhage [Recovered/Resolved]
